FAERS Safety Report 23038226 (Version 1)
Quarter: 2023Q4

REPORT INFORMATION
  Report Type: Spontaneous
  Country: US (occurrence: US)
  Receive Date: 20231006
  Receipt Date: 20231006
  Transmission Date: 20240110
  Serious: No
  Sender: FDA-Public Use
  Company Number: US-ELI_LILLY_AND_COMPANY-US202309015912

PATIENT
  Age: 34 Year
  Sex: Female

DRUGS (2)
  1. MOUNJARO [Suspect]
     Active Substance: TIRZEPATIDE
     Indication: Weight decreased
     Dosage: 15 MG, UNKNOWN
     Route: 065
     Dates: start: 202308
  2. MOUNJARO [Suspect]
     Active Substance: TIRZEPATIDE
     Indication: Type 2 diabetes mellitus

REACTIONS (11)
  - Illness [Unknown]
  - Feeling abnormal [Unknown]
  - Weight increased [Unknown]
  - Insomnia [Unknown]
  - Palpitations [Unknown]
  - Brain fog [Unknown]
  - Feeling jittery [Unknown]
  - Decreased appetite [Unknown]
  - Fatigue [Unknown]
  - Dizziness [Unknown]
  - Blood glucose decreased [Unknown]

NARRATIVE: CASE EVENT DATE: 20230926
